FAERS Safety Report 19286886 (Version 1)
Quarter: 2021Q2

REPORT INFORMATION
  Report Type: Spontaneous
  Country: PL (occurrence: PL)
  Receive Date: 20210522
  Receipt Date: 20210522
  Transmission Date: 20210717
  Serious: Yes (Death, Hospitalization, Other)
  Sender: FDA-Public Use
  Company Number: PL-EPICPHARMA-PL-2021EPCLIT00534

PATIENT
  Age: 31 Year
  Sex: Male

DRUGS (2)
  1. AMPHETAMINE SULFATE. [Suspect]
     Active Substance: AMPHETAMINE SULFATE
     Indication: PRODUCT USED FOR UNKNOWN INDICATION
     Route: 048
  2. 8?TETRAHYDROCANNABINOL [Suspect]
     Active Substance: .DELTA.8-TETRAHYDROCANNABINOL
     Indication: PRODUCT USED FOR UNKNOWN INDICATION
     Route: 048

REACTIONS (13)
  - Rhabdomyolysis [Unknown]
  - Toxicity to various agents [Unknown]
  - Multiple organ dysfunction syndrome [Fatal]
  - Aggression [Unknown]
  - Liver injury [Fatal]
  - Hyperthermia [Unknown]
  - Acute kidney injury [Fatal]
  - Agitation [Unknown]
  - Acute respiratory failure [Fatal]
  - Pneumonia [Fatal]
  - Seizure [Unknown]
  - Hypotension [Unknown]
  - Metabolic acidosis [Unknown]
